FAERS Safety Report 20868846 (Version 1)
Quarter: 2022Q2

REPORT INFORMATION
  Report Type: Spontaneous
  Country: US (occurrence: US)
  Receive Date: 20220524
  Receipt Date: 20220524
  Transmission Date: 20220721
  Serious: No
  Sender: FDA-Public Use
  Company Number: US-PFIZER INC-202200661508

PATIENT
  Age: 70 Year
  Sex: Female
  Weight: 77.11 kg

DRUGS (1)
  1. ACCUPRIL [Suspect]
     Active Substance: QUINAPRIL HYDROCHLORIDE
     Indication: Hypertension
     Dosage: UNK, (20MG, PRESCRIBED TO TAKE 1.5 TABLETS A DAY)

REACTIONS (3)
  - Recalled product administered [Unknown]
  - Intentional product misuse [Unknown]
  - Palpitations [Unknown]
